FAERS Safety Report 17483708 (Version 5)
Quarter: 2020Q2

REPORT INFORMATION
  Report Type: Spontaneous
  Country: IT (occurrence: IT)
  Receive Date: 20200302
  Receipt Date: 20200623
  Transmission Date: 20200713
  Serious: Yes (Hospitalization, Other)
  Sender: FDA-Public Use
  Company Number: NVSC2019IT047289

PATIENT
  Age: 55 Year
  Sex: Female

DRUGS (24)
  1. ETOPOSIDE. [Suspect]
     Active Substance: ETOPOSIDE
     Indication: ADRENAL GLAND CANCER
     Dosage: EDP REGIMEN
     Route: 065
     Dates: start: 201703
  2. CISPLATIN. [Suspect]
     Active Substance: CISPLATIN
     Indication: ADRENAL GLAND CANCER
     Dosage: EDP REGIMEN
     Route: 065
     Dates: start: 201703
  3. CISPLATIN. [Suspect]
     Active Substance: CISPLATIN
     Indication: METASTASES TO BONE
  4. MITOTANE [Suspect]
     Active Substance: MITOTANE
     Indication: METASTASES TO LUNG
     Dosage: UNK
     Route: 065
     Dates: start: 201703
  5. MITOTANE [Suspect]
     Active Substance: MITOTANE
     Indication: METASTASES TO LIVER
  6. CISPLATIN. [Suspect]
     Active Substance: CISPLATIN
     Indication: METASTASES TO LUNG
  7. CISPLATIN. [Suspect]
     Active Substance: CISPLATIN
     Indication: METASTASES TO LIVER
  8. CIPROFLOXACIN. [Suspect]
     Active Substance: CIPROFLOXACIN
     Indication: BACTERIAL INFECTION
  9. DOXORUBICIN [Suspect]
     Active Substance: DOXORUBICIN
     Indication: METASTASES TO LIVER
  10. ETOPOSIDE. [Suspect]
     Active Substance: ETOPOSIDE
     Indication: METASTASES TO LIVER
  11. CISPLATIN. [Suspect]
     Active Substance: CISPLATIN
     Indication: ADRENOCORTICAL CARCINOMA
  12. MITOTANE [Suspect]
     Active Substance: MITOTANE
     Indication: ADRENOCORTICAL CARCINOMA
  13. CIPROFLOXACIN. [Suspect]
     Active Substance: CIPROFLOXACIN
     Indication: DEVICE RELATED INFECTION
  14. DOXORUBICIN [Suspect]
     Active Substance: DOXORUBICIN
     Indication: ADRENAL GLAND CANCER
     Dosage: EDP REGIMEN
     Route: 065
     Dates: start: 201703
  15. MITOTANE [Suspect]
     Active Substance: MITOTANE
     Indication: ADRENAL GLAND CANCER
     Dosage: UNK
     Route: 065
     Dates: start: 201701
  16. DOXORUBICIN [Suspect]
     Active Substance: DOXORUBICIN
     Indication: ADRENOCORTICAL CARCINOMA
  17. MITOTANE [Suspect]
     Active Substance: MITOTANE
     Indication: METASTASES TO BONE
  18. LEVOFLOXACIN. [Concomitant]
     Active Substance: LEVOFLOXACIN
     Indication: DEVICE RELATED INFECTION
     Dosage: UNK
     Route: 042
  19. ETOPOSIDE. [Suspect]
     Active Substance: ETOPOSIDE
     Indication: METASTASES TO BONE
  20. DOXORUBICIN [Suspect]
     Active Substance: DOXORUBICIN
     Indication: METASTASES TO BONE
  21. DOXORUBICIN [Suspect]
     Active Substance: DOXORUBICIN
     Indication: METASTASES TO LUNG
  22. ETOPOSIDE. [Suspect]
     Active Substance: ETOPOSIDE
     Indication: METASTASES TO LUNG
  23. ETOPOSIDE. [Suspect]
     Active Substance: ETOPOSIDE
     Indication: ADRENOCORTICAL CARCINOMA
  24. CIPROFLOXACIN. [Suspect]
     Active Substance: CIPROFLOXACIN
     Indication: ANTIBIOTIC THERAPY
     Dosage: UNK
     Route: 050
     Dates: start: 2017, end: 2017

REACTIONS (6)
  - Bacteraemia [Recovered/Resolved]
  - Device related infection [Recovered/Resolved]
  - Pyrexia [Recovered/Resolved]
  - Pyrexia [Recovered/Resolved]
  - Infusion site reaction [Recovered/Resolved]
  - Product use in unapproved indication [Unknown]

NARRATIVE: CASE EVENT DATE: 2017
